FAERS Safety Report 8713258 (Version 5)
Quarter: 2013Q1

REPORT INFORMATION
  Report Type: Report from Study
  Country: JP (occurrence: JP)
  Receive Date: 20120808
  Receipt Date: 20130225
  Transmission Date: 20140127
  Serious: Yes (Death)
  Sender: FDA-Public Use
  Company Number: JP-PFIZER INC-2012190104

PATIENT
  Age: 53 Year
  Sex: Female
  Weight: 52 kg

DRUGS (9)
  1. XALKORI [Suspect]
     Indication: NON-SMALL CELL LUNG CANCER
     Dosage: 250 MG, 2X/DAY
     Route: 048
     Dates: start: 20120720, end: 20120805
  2. GASTER [Concomitant]
     Indication: PROPHYLAXIS AGAINST GASTROINTESTINAL ULCER
     Dosage: 20 MG, 1X/DAY
     Route: 048
     Dates: start: 20120702, end: 20120805
  3. NOVAMIN [Concomitant]
     Dosage: 5 MG, 3X/DAY
     Route: 048
     Dates: start: 20120628, end: 20120726
  4. MAGMITT [Concomitant]
     Dosage: 330 MG, 3X/DAY
     Route: 048
     Dates: start: 20120725, end: 20120805
  5. PURSENNID [Concomitant]
     Dosage: 12 MG, 1X/DAY
     Route: 048
     Dates: start: 20120724, end: 20120805
  6. DECADRON [Concomitant]
     Indication: HEADACHE
     Dosage: 1 MG, 2X/DAY
     Route: 048
     Dates: start: 20120723, end: 20120805
  7. DECADRON [Concomitant]
     Indication: DIZZINESS
  8. PANTOSIN [Concomitant]
     Dosage: 100 MG, 3X/DAY
     Route: 048
     Dates: start: 20120725, end: 20120805
  9. BONALON [Concomitant]
     Dosage: 35 MG, WEEKLY
     Route: 048
     Dates: start: 20120731, end: 20120731

REACTIONS (1)
  - Completed suicide [Fatal]
